FAERS Safety Report 20215909 (Version 1)
Quarter: 2021Q4

REPORT INFORMATION
  Report Type: Spontaneous
  Country: CN (occurrence: CN)
  Receive Date: 20211222
  Receipt Date: 20211222
  Transmission Date: 20220303
  Serious: Yes (Hospitalization)
  Sender: FDA-Public Use
  Company Number: CN-LUPIN PHARMACEUTICALS INC.-2021-25225

PATIENT
  Age: 47 Year
  Sex: Male

DRUGS (3)
  1. METHYLPREDNISOLONE [Suspect]
     Active Substance: METHYLPREDNISOLONE
     Indication: Toxic epidermal necrolysis
     Dosage: 80 MILLIGRAM, QD (1.14MG/KG/DAY)
     Route: 065
  2. Immunoglobulin [Concomitant]
     Indication: Toxic epidermal necrolysis
     Dosage: 30 GRAM, QD
     Route: 042
  3. Immunoglobulin [Concomitant]
     Dosage: 150 GRAM, QD
     Route: 042

REACTIONS (1)
  - Drug resistance [Unknown]
